FAERS Safety Report 9336375 (Version 1)
Quarter: 2013Q2

REPORT INFORMATION
  Report Type: Spontaneous
  Country: US (occurrence: US)
  Receive Date: 20130607
  Receipt Date: 20130607
  Transmission Date: 20140414
  Serious: No
  Sender: FDA-Public Use
  Company Number: US-JNJFOC-20130516301

PATIENT
  Sex: Female
  Weight: 58.97 kg

DRUGS (2)
  1. DURAGESIC [Suspect]
     Indication: FIBROMYALGIA
     Dosage: INITIATED IN 2001 OR 2002??ONCE IN 4 OR 5 DAYS
     Route: 062
  2. HYDROCODONE [Concomitant]
     Indication: PAIN
     Route: 048

REACTIONS (3)
  - Drug ineffective [Unknown]
  - Inappropriate schedule of drug administration [Unknown]
  - Product quality issue [Unknown]
